FAERS Safety Report 9542259 (Version 2)
Quarter: 2013Q3

REPORT INFORMATION
  Report Type: Spontaneous
  Country: MY (occurrence: MY)
  Receive Date: 20130923
  Receipt Date: 20130930
  Transmission Date: 20140515
  Serious: Yes (Death)
  Sender: FDA-Public Use
  Company Number: MY-PFIZER INC-2013269111

PATIENT
  Age: 72 Year
  Sex: Male

DRUGS (3)
  1. SUTENT [Suspect]
     Indication: RENAL CANCER METASTATIC
     Dosage: 50 MG, 1X/DAY
  2. THYROXINE [Concomitant]
     Dosage: 0.1 MG, 1X/DAY
     Route: 048
  3. IRON [Concomitant]
     Indication: ANAEMIA
     Dosage: TWICE A DAY

REACTIONS (2)
  - Death [Fatal]
  - Protein urine present [Unknown]
